FAERS Safety Report 9490452 (Version 1)
Quarter: 2013Q3

REPORT INFORMATION
  Report Type: Spontaneous
  Country: US (occurrence: None)
  Receive Date: 20130809
  Receipt Date: 20130809
  Transmission Date: 20140515
  Serious: Yes (Hospitalization)
  Sender: FDA-Public Use
  Company Number: 54973 AE # 1464

PATIENT
  Age: 64 Year
  Sex: Female

DRUGS (3)
  1. HYLAND^S RESTFUL LEGS TABLETS [Suspect]
     Indication: PYREXIA
     Dosage: 1TAB; THEN 2TABS 2HRS LTR
  2. HYLAND^S RESTFUL LEGS TABLETS [Suspect]
     Indication: PRURITUS
     Dosage: 1TAB; THEN 2TABS 2HRS LTR
  3. HYLAND^S RESTFUL LEGS TABLETS [Suspect]
     Indication: DYSKINESIA
     Dosage: 1TAB; THEN 2TABS 2HRS LTR

REACTIONS (5)
  - Hallucination [None]
  - Fall [None]
  - Joint injury [None]
  - Anxiety [None]
  - Unevaluable event [None]
